FAERS Safety Report 7748905-8 (Version None)
Quarter: 2011Q3

REPORT INFORMATION
  Report Type: 
  Country: None (occurrence: None)
  Receive Date: 20110909
  Receipt Date: 20110830
  Transmission Date: 20111222
  Serious: Yes (Life-Threatening)
  Sender: FDA-Public Use
  Company Number: 2011SP039092

PATIENT
  Age: 30 Year
  Sex: Female

DRUGS (3)
  1. PANTOPRAZOLE SODIUM [Concomitant]
  2. NOXAFIL [Suspect]
     Indication: FUNGAL INFECTION
     Dosage: 200 MG; QID;
     Dates: start: 20071020, end: 20080125
  3. ONDANSETRON HYDROCHLORIDE [Suspect]
     Indication: PRODUCT USED FOR UNKNOWN INDICATION
     Dates: start: 20080122, end: 20080125

REACTIONS (5)
  - ARRHYTHMIA [None]
  - ATRIOVENTRICULAR BLOCK SECOND DEGREE [None]
  - NODAL ARRHYTHMIA [None]
  - SINUS BRADYCARDIA [None]
  - DRUG INTERACTION [None]
